FAERS Safety Report 7701611-8 (Version None)
Quarter: 2011Q3

REPORT INFORMATION
  Report Type: 
  Country: None (occurrence: None)
  Receive Date: 20110822
  Receipt Date: 20110812
  Transmission Date: 20111222
  Serious: Yes (Other)
  Sender: FDA-Public Use
  Company Number: BR-ASTRAZENECA-2011SE48657

PATIENT
  Age: 81 Year
  Sex: Female
  Weight: 83 kg

DRUGS (4)
  1. CITALOPRAM MALEATE [Suspect]
     Indication: DEPRESSION
     Dosage: ONCE DAILY
     Route: 048
     Dates: start: 20110401
  2. ALPRAZOLAM [Concomitant]
     Indication: DEPRESSION
     Route: 048
  3. ARIMIDEX [Suspect]
     Indication: BREAST CANCER
     Dosage: ONCE DAILY
     Route: 048
     Dates: start: 20101030
  4. UNKNOWN [Concomitant]
     Indication: HYPERCHOLESTEROLAEMIA
     Route: 048

REACTIONS (7)
  - DEPRESSION [None]
  - DYSPNOEA [None]
  - HYPERGLYCAEMIA [None]
  - WEIGHT INCREASED [None]
  - OCULAR HYPERAEMIA [None]
  - SUICIDAL IDEATION [None]
  - FATIGUE [None]
